FAERS Safety Report 24976025 (Version 1)
Quarter: 2025Q1

REPORT INFORMATION
  Report Type: Spontaneous
  Country: US (occurrence: US)
  Receive Date: 20250217
  Receipt Date: 20250217
  Transmission Date: 20250409
  Serious: Yes (Other)
  Sender: COOPERSURGICAL
  Company Number: US-COOPERSURGICAL, INC.-2025CPS000934

PATIENT
  Age: 31 Year
  Sex: Female
  Weight: 121.54 kg

DRUGS (5)
  1. PARAGARD T 380A [Suspect]
     Active Substance: COPPER
     Indication: Contraception
     Route: 015
     Dates: start: 20130401
  2. LEVOMEFOLIC ACID [Concomitant]
     Active Substance: LEVOMEFOLIC ACID
     Dates: start: 202208
  3. NORTRIPTYLINE [Concomitant]
     Active Substance: NORTRIPTYLINE
     Dates: start: 202107
  4. PROPRANOLOL [Concomitant]
     Active Substance: PROPRANOLOL HYDROCHLORIDE
     Dates: start: 202107
  5. BUSPIRONE [Concomitant]
     Active Substance: BUSPIRONE HYDROCHLORIDE
     Dates: start: 202105

REACTIONS (7)
  - Reproductive complication associated with device [Not Recovered/Not Resolved]
  - Female sterilisation [Recovered/Resolved]
  - Device breakage [Not Recovered/Not Resolved]
  - Foreign body in reproductive tract [Not Recovered/Not Resolved]
  - Complication of device removal [Not Recovered/Not Resolved]
  - Emotional distress [Not Recovered/Not Resolved]
  - Anxiety disorder [Not Recovered/Not Resolved]

NARRATIVE: CASE EVENT DATE: 20220803
